FAERS Safety Report 8327433-5 (Version None)
Quarter: 2012Q2

REPORT INFORMATION
  Report Type: 
  Country: None (occurrence: None)
  Receive Date: 20120419
  Receipt Date: 20120405
  Transmission Date: 20120825
  Serious: Yes (Hospitalization)
  Sender: FDA-Public Use
  Company Number: 2012PROUSA01249

PATIENT
  Age: 76 Year
  Sex: Male
  Weight: 111.6 kg

DRUGS (7)
  1. SIMVASTATIN [Concomitant]
  2. HYDROCHLOROTHIAZIDE [Concomitant]
  3. AMLODIPINE [Concomitant]
  4. ASPIRIN [Concomitant]
  5. AMLODIPINE [Concomitant]
  6. PROVENGE [Suspect]
     Indication: PROSTATE CANCER METASTATIC
     Dosage: 250 ML, SINGLE, INTRAVENOUS
     Route: 042
     Dates: start: 20120402, end: 20120402
  7. LISINOPRIL [Concomitant]

REACTIONS (21)
  - HYPOVOLAEMIA [None]
  - BLOOD GLUCOSE INCREASED [None]
  - FALL [None]
  - SEPSIS [None]
  - VISION BLURRED [None]
  - SYNCOPE [None]
  - ASTHENIA [None]
  - BRAIN CANCER METASTATIC [None]
  - PANCYTOPENIA [None]
  - HYPERLIPIDAEMIA [None]
  - IMPAIRED DRIVING ABILITY [None]
  - MENTAL STATUS CHANGES [None]
  - CHILLS [None]
  - URINARY TRACT INFECTION [None]
  - HYPOTENSION [None]
  - SHOCK [None]
  - MYOCARDIAL INFARCTION [None]
  - CONFUSIONAL STATE [None]
  - MALAISE [None]
  - PLATELET COUNT DECREASED [None]
  - LEUKOCYTOSIS [None]
